FAERS Safety Report 9299430 (Version 6)
Quarter: 2016Q1

REPORT INFORMATION
  Report Type: Spontaneous
  Country: US (occurrence: US)
  Receive Date: 20130521
  Receipt Date: 20160325
  Transmission Date: 20160526
  Serious: Yes (Hospitalization, Disabling, Other)
  Sender: FDA-Public Use
  Company Number: US-009507513-1305USA010156

PATIENT
  Sex: Male

DRUGS (2)
  1. PROPECIA [Suspect]
     Active Substance: FINASTERIDE
     Indication: ANDROGENETIC ALOPECIA
  2. PROPECIA [Suspect]
     Active Substance: FINASTERIDE
     Indication: ALOPECIA
     Dosage: 1 MG, UNKNOWN
     Route: 048
     Dates: start: 1999, end: 200909

REACTIONS (52)
  - Hormone level abnormal [Unknown]
  - Libido decreased [Unknown]
  - Semen volume decreased [Unknown]
  - Sexual dysfunction [Not Recovered/Not Resolved]
  - Rectal haemorrhage [Unknown]
  - Coronary artery disease [Unknown]
  - Gastrointestinal haemorrhage [Unknown]
  - Obesity [Unknown]
  - Sinusitis [Unknown]
  - Coronary artery bypass [Unknown]
  - Cardiac disorder [Not Recovered/Not Resolved]
  - Coronary arterial stent insertion [Unknown]
  - Soft tissue injury [Unknown]
  - Colon adenoma [Unknown]
  - Arthralgia [Unknown]
  - Diastasis recti abdominis [Unknown]
  - Talipes [Unknown]
  - Ligament sprain [Unknown]
  - Poor quality sleep [Not Recovered/Not Resolved]
  - Erectile dysfunction [Not Recovered/Not Resolved]
  - Haemorrhoids [Unknown]
  - Trigger finger [Recovering/Resolving]
  - Myalgia [Unknown]
  - Depression [Not Recovered/Not Resolved]
  - Brain injury [Unknown]
  - Constipation [Unknown]
  - Non-cardiac chest pain [Unknown]
  - Epistaxis [Unknown]
  - Myositis [Unknown]
  - Angina unstable [Unknown]
  - Arthralgia [Not Recovered/Not Resolved]
  - Myocardial infarction [Unknown]
  - Periarthritis [Unknown]
  - Sleep apnoea syndrome [Unknown]
  - Pain in extremity [Unknown]
  - Osteoarthritis [Unknown]
  - Carpal tunnel syndrome [Not Recovered/Not Resolved]
  - Enzyme level abnormal [Unknown]
  - Hypersomnia [Unknown]
  - Soft tissue neoplasm [Unknown]
  - Gastrooesophageal reflux disease [Unknown]
  - Ejaculation disorder [Unknown]
  - Intervertebral disc degeneration [Unknown]
  - Type V hyperlipidaemia [Unknown]
  - Type 2 diabetes mellitus [Unknown]
  - Essential hypertension [Unknown]
  - Actinic keratosis [Unknown]
  - Tendon injury [Unknown]
  - Tendonitis [Unknown]
  - Umbilical hernia [Unknown]
  - Neoplasm malignant [Unknown]
  - Rhinitis allergic [Unknown]

NARRATIVE: CASE EVENT DATE: 2000
